FAERS Safety Report 22633394 (Version 6)
Quarter: 2023Q4

REPORT INFORMATION
  Report Type: Report from Study
  Country: JP (occurrence: JP)
  Receive Date: 20230623
  Receipt Date: 20231005
  Transmission Date: 20240110
  Serious: Yes (Other)
  Sender: FDA-Public Use
  Company Number: JP-SAKK-2023SA182223AA

PATIENT
  Age: 75 Year
  Sex: Female
  Weight: 56.4 kg

DRUGS (58)
  1. ISATUXIMAB [Suspect]
     Active Substance: ISATUXIMAB
     Indication: Plasma cell myeloma
     Dosage: 564 MG
     Route: 042
     Dates: start: 20230502, end: 20230502
  2. ISATUXIMAB [Suspect]
     Active Substance: ISATUXIMAB
     Dosage: 573 MG
     Route: 042
     Dates: start: 20180612, end: 20180612
  3. ISATUXIMAB [Suspect]
     Active Substance: ISATUXIMAB
     Dosage: 552 MG
     Route: 042
     Dates: start: 20230531, end: 20230531
  4. ISATUXIMAB [Suspect]
     Active Substance: ISATUXIMAB
     Dosage: 564 MG
     Route: 042
     Dates: start: 20230719, end: 20230719
  5. LENALIDOMIDE [Suspect]
     Active Substance: LENALIDOMIDE
     Indication: Plasma cell myeloma
     Dosage: TOTAL DAILY DOSE: 25 MG
     Route: 048
     Dates: start: 20230502, end: 20230522
  6. LENALIDOMIDE [Suspect]
     Active Substance: LENALIDOMIDE
     Dosage: TOTAL DAILY DOSE: 25 MG
     Route: 048
     Dates: start: 20180612, end: 20180614
  7. LENALIDOMIDE [Suspect]
     Active Substance: LENALIDOMIDE
     Dosage: TOTAL DAILY DOSE: 25 MG
     Route: 048
     Dates: start: 20230405, end: 20230425
  8. LENALIDOMIDE [Suspect]
     Active Substance: LENALIDOMIDE
     Dosage: TOTAL DAILY DOSE: 25 MG
     Route: 048
     Dates: start: 20230531, end: 20230613
  9. LENALIDOMIDE [Suspect]
     Active Substance: LENALIDOMIDE
     Dosage: TOTAL DAILY DOSE: 25 MG
     Route: 048
     Dates: start: 20230719, end: 20230808
  10. DEXAMETHASONE [Suspect]
     Active Substance: DEXAMETHASONE
     Indication: Plasma cell myeloma
     Dosage: TOTAL DAILY DOSE: 12 MG
     Route: 048
     Dates: start: 20230510
  11. ISATUXIMAB [Suspect]
     Active Substance: ISATUXIMAB
     Dosage: TOTAL DAILY DOSE: 20 MG
     Route: 042
     Dates: start: 20180612
  12. DEXAMETHASONE [Suspect]
     Active Substance: DEXAMETHASONE
     Dosage: TOTAL DAILY DOSE: 20 MG
     Route: 048
     Dates: start: 20180613
  13. ISATUXIMAB [Suspect]
     Active Substance: ISATUXIMAB
     Dosage: TOTAL DAILY DOSE: 20 MG
     Route: 048
     Dates: start: 20180615
  14. DEXAMETHASONE [Suspect]
     Active Substance: DEXAMETHASONE
     Dosage: TOTAL DAILY DOSE: 12 MG
     Route: 048
     Dates: start: 20230412
  15. ISATUXIMAB [Suspect]
     Active Substance: ISATUXIMAB
     Dosage: TOTAL DAILY DOSE: 12 MG
     Route: 048
     Dates: start: 20230419
  16. DEXAMETHASONE [Suspect]
     Active Substance: DEXAMETHASONE
     Dosage: TOTAL DAILY DOSE: 12 MG
     Route: 048
     Dates: start: 20230426
  17. ISATUXIMAB [Suspect]
     Active Substance: ISATUXIMAB
     Dosage: TOTAL DAILY DOSE: 12 MG
     Route: 042
     Dates: start: 20230502
  18. DEXAMETHASONE [Suspect]
     Active Substance: DEXAMETHASONE
     Dosage: TOTAL DAILY DOSE: 12 MG
     Route: 048
     Dates: start: 20230517
  19. ISATUXIMAB [Suspect]
     Active Substance: ISATUXIMAB
     Dosage: TOTAL DAILY DOSE: 12 MG
     Route: 048
     Dates: start: 20230524
  20. DEXAMETHASONE [Suspect]
     Active Substance: DEXAMETHASONE
     Dosage: TOTAL DAILY DOSE: 12 MG
     Route: 042
     Dates: start: 20230531
  21. ISATUXIMAB [Suspect]
     Active Substance: ISATUXIMAB
     Dosage: TOTAL DAILY DOSE: 12 MG
     Route: 048
     Dates: start: 20230607
  22. DEXAMETHASONE [Suspect]
     Active Substance: DEXAMETHASONE
     Dosage: TOTAL DAILY DOSE: 12 MG
     Route: 048
     Dates: start: 20230614
  23. ISATUXIMAB [Suspect]
     Active Substance: ISATUXIMAB
     Dosage: TOTAL DAILY DOSE: 12 MG
     Route: 042
     Dates: start: 20230719
  24. DEXAMETHASONE [Suspect]
     Active Substance: DEXAMETHASONE
     Dosage: TOTAL DAILY DOSE: 12 MG
     Route: 048
     Dates: start: 20230726
  25. ISATUXIMAB [Suspect]
     Active Substance: ISATUXIMAB
     Dosage: TOTAL DAILY DOSE: 12 MG
     Route: 048
     Dates: start: 20230802
  26. DEXAMETHASONE [Suspect]
     Active Substance: DEXAMETHASONE
     Dosage: TOTAL DAILY DOSE: 12 MG
     Route: 048
     Dates: start: 20230809
  27. BORTEZOMIB [Suspect]
     Active Substance: BORTEZOMIB
     Indication: Plasma cell myeloma
     Dosage: 2.04 MG
     Route: 058
     Dates: start: 20180612
  28. ASPIRIN [Concomitant]
     Active Substance: ASPIRIN
     Indication: Thrombosis prophylaxis
     Dosage: 1 DF, QD
     Route: 048
     Dates: start: 20180612
  29. LOXOPROFEN SODIUM [Concomitant]
     Active Substance: LOXOPROFEN SODIUM
     Indication: Back pain
     Dosage: 1 SHEET, PRN
     Route: 062
     Dates: start: 20180617
  30. CALCIUM CARBONATE\CHOLECALCIFEROL\MAGNESIUM CARBONATE [Concomitant]
     Active Substance: CALCIUM CARBONATE\CHOLECALCIFEROL\MAGNESIUM CARBONATE
     Indication: Prophylaxis
     Dosage: 2 DF, QD
     Route: 048
     Dates: start: 20190416
  31. ACETAMINOPHEN [Concomitant]
     Active Substance: ACETAMINOPHEN
     Indication: Spondylolisthesis
     Dosage: 2 DF, PRN
     Route: 048
     Dates: start: 20191008
  32. ACETAMINOPHEN [Concomitant]
     Active Substance: ACETAMINOPHEN
     Indication: Prophylaxis
     Dosage: 1000 MG
     Route: 048
     Dates: start: 20230308, end: 20230308
  33. ACETAMINOPHEN [Concomitant]
     Active Substance: ACETAMINOPHEN
     Dosage: 1000 MG
     Route: 048
     Dates: start: 20230405, end: 20230405
  34. ACETAMINOPHEN [Concomitant]
     Active Substance: ACETAMINOPHEN
     Dosage: 1000 MG
     Route: 048
     Dates: start: 20230502, end: 20230502
  35. HEPARINOID [Concomitant]
     Indication: Folliculitis
     Dosage: APPROPRIATE DOSE, 1X
     Route: 062
     Dates: start: 20210929
  36. ACYCLOVIR [Concomitant]
     Active Substance: ACYCLOVIR
     Indication: Prophylaxis
     Dosage: 1 TABLET EACH, BID
     Route: 048
     Dates: start: 20180612
  37. DEXCHLORPHENIRAMINE MALEATE [Concomitant]
     Active Substance: DEXCHLORPHENIRAMINE MALEATE
     Indication: Prophylaxis
     Dosage: 10 MG
     Route: 042
     Dates: start: 20230308, end: 20230308
  38. DEXCHLORPHENIRAMINE MALEATE [Concomitant]
     Active Substance: DEXCHLORPHENIRAMINE MALEATE
     Dosage: 10 MG
     Route: 042
     Dates: start: 20230405, end: 20230405
  39. DEXCHLORPHENIRAMINE MALEATE [Concomitant]
     Active Substance: DEXCHLORPHENIRAMINE MALEATE
     Dosage: 10 MG
     Route: 042
     Dates: start: 20230502, end: 20230502
  40. FAMOTIDINE [Concomitant]
     Active Substance: FAMOTIDINE
     Indication: Prophylaxis
     Dosage: 20 MG
     Route: 042
     Dates: start: 20230308, end: 20230308
  41. FAMOTIDINE [Concomitant]
     Active Substance: FAMOTIDINE
     Dosage: 20 MG
     Route: 042
     Dates: start: 20230405, end: 20230405
  42. FAMOTIDINE [Concomitant]
     Active Substance: FAMOTIDINE
     Dosage: 20 MG
     Route: 042
     Dates: start: 20230502, end: 20230502
  43. MAGNESIUM OXIDE [Concomitant]
     Active Substance: MAGNESIUM OXIDE
     Indication: Product used for unknown indication
     Dosage: UNK
     Route: 048
     Dates: start: 20180616
  44. SENNOSIDES A AND B [Concomitant]
     Active Substance: SENNOSIDES A AND B
     Indication: Product used for unknown indication
     Dosage: UNK
     Route: 048
     Dates: start: 20180727
  45. SODIUM PICOSULFATE [Concomitant]
     Active Substance: SODIUM PICOSULFATE
     Indication: Product used for unknown indication
     Dosage: UNK
     Route: 048
     Dates: start: 20180907
  46. SULFAMETHOXAZOLE\TRIMETHOPRIM [Concomitant]
     Active Substance: SULFAMETHOXAZOLE\TRIMETHOPRIM
     Indication: Prophylaxis
     Dosage: UNK
     Route: 048
     Dates: start: 20180825
  47. KENKETU GLOVENIN-I [Concomitant]
     Active Substance: HUMAN IMMUNOGLOBULIN G
     Indication: Product used for unknown indication
     Dosage: UNK
     Route: 042
     Dates: start: 20191203
  48. KETOPROFEN [Concomitant]
     Active Substance: KETOPROFEN
     Indication: Product used for unknown indication
     Dosage: UNK
     Route: 062
     Dates: start: 20210309
  49. CEFACLOR [Concomitant]
     Active Substance: CEFACLOR
     Indication: Product used for unknown indication
     Dosage: UNK
     Route: 048
     Dates: start: 20210825
  50. CEFACLOR [Concomitant]
     Active Substance: CEFACLOR
     Indication: Prophylaxis
     Dosage: UNK
     Route: 048
     Dates: start: 20230510, end: 20230514
  51. CEFACLOR [Concomitant]
     Active Substance: CEFACLOR
     Dosage: UNK
     Route: 048
     Dates: start: 20230621, end: 20230624
  52. LEVOFLOXACIN HEMIHYDRATE [Concomitant]
     Active Substance: LEVOFLOXACIN
     Indication: Prophylaxis
     Dosage: UNK
     Route: 047
     Dates: start: 20220901
  53. BETAMETHASONE SODIUM PHOSPHATE [Concomitant]
     Active Substance: BETAMETHASONE SODIUM PHOSPHATE
     Indication: Prophylaxis
     Dosage: UNK
     Route: 047
     Dates: start: 20220901
  54. BROMFENAC SODIUM [Concomitant]
     Active Substance: BROMFENAC SODIUM
     Indication: Prophylaxis
     Dosage: UNK
     Route: 047
     Dates: start: 20220901
  55. DIQUAFOSOL TETRASODIUM [Concomitant]
     Active Substance: DIQUAFOSOL TETRASODIUM
     Indication: Prophylaxis
     Dosage: UNK
     Route: 047
     Dates: start: 20230404
  56. GENTAMICIN SULFATE [Concomitant]
     Active Substance: GENTAMICIN SULFATE
     Indication: Prophylaxis
     Dosage: UNK
     Route: 062
     Dates: start: 20230510
  57. ISATUXIMAB [Suspect]
     Active Substance: ISATUXIMAB
  58. ISATUXIMAB [Suspect]
     Active Substance: ISATUXIMAB

REACTIONS (1)
  - Squamous cell carcinoma of skin [Recovered/Resolved]

NARRATIVE: CASE EVENT DATE: 20230510
